FAERS Safety Report 4623475-1 (Version None)
Quarter: 2005Q1

REPORT INFORMATION
  Report Type: 
  Country: None (occurrence: None)
  Receive Date: 20050330
  Receipt Date: 20050316
  Transmission Date: 20050727
  Serious: Yes (Life-Threatening)
  Sender: FDA-Public Use
  Company Number: 05H-087-0293680-00

PATIENT
  Age: 36 Year
  Sex: Male
  Weight: 98 kg

DRUGS (8)
  1. PRECEDEX [Suspect]
     Dosage: SEE IMAGE
     Route: 042
     Dates: start: 20050307, end: 20050307
  2. PRECEDEX [Suspect]
     Dosage: SEE IMAGE
     Route: 042
     Dates: start: 20050307, end: 20050307
  3. PROPOFOL [Concomitant]
  4. ATROPINE SULFATE [Concomitant]
  5. FAMOTIDINE [Concomitant]
  6. MIDAZOLAM HCL [Concomitant]
  7. FENTANYL CITRATE [Concomitant]
  8. VECURONIUM BROMIDE [Concomitant]

REACTIONS (1)
  - CARDIAC TAMPONADE [None]
